FAERS Safety Report 7950198-3 (Version None)
Quarter: 2011Q4

REPORT INFORMATION
  Report Type: 
  Country: None (occurrence: None)
  Receive Date: 20111130
  Receipt Date: 20111121
  Transmission Date: 20120403
  Serious: Yes (Other)
  Sender: FDA-Public Use
  Company Number: CHPA2011US016667

PATIENT
  Age: 81 Year
  Sex: Male

DRUGS (1)
  1. BENEFIBER SUGAR FREE [Suspect]
     Indication: MEDICAL DIET
     Dosage: UNK , QD
     Route: 048
     Dates: start: 20111101, end: 20111101

REACTIONS (2)
  - TOOTH FRACTURE [None]
  - MALAISE [None]
